FAERS Safety Report 11878515 (Version 1)
Quarter: 2015Q4

REPORT INFORMATION
  Report Type: Spontaneous
  Country: US (occurrence: None)
  Receive Date: 20151229
  Receipt Date: 20151229
  Transmission Date: 20160305
  Serious: No
  Sender: FDA-Public Use
  Company Number: None

PATIENT
  Age: 44 Year
  Sex: Male
  Weight: 92.8 kg

DRUGS (1)
  1. DEXTROSE/HEPARIN [Suspect]
     Active Substance: DEXTROSE\HEPARIN
     Indication: PRODUCT USED FOR UNKNOWN INDICATION
     Dosage: 50 UNITS IV
     Route: 042
     Dates: start: 20100107, end: 20100108

REACTIONS (1)
  - Heparin-induced thrombocytopenia [None]

NARRATIVE: CASE EVENT DATE: 20100108
